FAERS Safety Report 7993634-9 (Version None)
Quarter: 2011Q4

REPORT INFORMATION
  Report Type: 
  Country: None (occurrence: None)
  Receive Date: 20111219
  Receipt Date: 20111209
  Transmission Date: 20120403
  Serious: Yes (Other)
  Sender: FDA-Public Use
  Company Number: US-ASTRAZENECA-2011SE74986

PATIENT
  Sex: Female

DRUGS (1)
  1. SEROQUEL [Suspect]
     Route: 048

REACTIONS (8)
  - BRAIN NEOPLASM [None]
  - SLEEP DISORDER [None]
  - Q FEVER [None]
  - RESPIRATORY DISORDER [None]
  - EPSTEIN-BARR VIRUS INFECTION [None]
  - LYME DISEASE [None]
  - CHRONIC FATIGUE SYNDROME [None]
  - ILL-DEFINED DISORDER [None]
